FAERS Safety Report 5717476-X (Version None)
Quarter: 2008Q2

REPORT INFORMATION
  Report Type: 
  Country: None (occurrence: None)
  Receive Date: 20080424
  Receipt Date: 20080424
  Transmission Date: 20081010
  Serious: No
  Sender: FDA-Public Use
  Company Number: None

PATIENT
  Sex: Female
  Weight: 75.6 kg

DRUGS (1)
  1. MELPHALAN [Suspect]
     Dosage: 295 MG
     Dates: end: 20080325

REACTIONS (7)
  - BLOOD CREATININE INCREASED [None]
  - HYPOTENSION [None]
  - HYPOXIA [None]
  - MUCOSAL INFLAMMATION [None]
  - NO THERAPEUTIC RESPONSE [None]
  - OLIGURIA [None]
  - STAPHYLOCOCCAL SEPSIS [None]
